FAERS Safety Report 16716146 (Version 2)
Quarter: 2019Q3

REPORT INFORMATION
  Report Type: Spontaneous
  Country: GB (occurrence: GB)
  Receive Date: 20190819
  Receipt Date: 20190829
  Transmission Date: 20191005
  Serious: No
  Sender: FDA-Public Use
  Company Number: GB-UCBSA-2019034921

PATIENT
  Age: 78 Year
  Sex: Male

DRUGS (3)
  1. ROTIGOTINE [Suspect]
     Active Substance: ROTIGOTINE
     Indication: PARKINSON^S DISEASE
     Dosage: UNKNOWN DOSE
     Route: 062
  2. CO-BENELDOPA [Suspect]
     Active Substance: BENSERAZIDE HYDROCHLORIDE\LEVODOPA
     Indication: PARKINSON^S DISEASE
     Dosage: CONTROLLED RELEASE AT 8PM (USUALLY AT BED TIME)
     Route: 048
  3. CO-CARELDOPA [Suspect]
     Active Substance: CARBIDOPA\LEVODOPA
     Indication: PARKINSON^S DISEASE
     Dosage: 25MG CARBIDOPA/100MG LEVODOPA AT 7AM, 10AM, 1PM AND 4PM
     Route: 048

REACTIONS (2)
  - Application site reaction [Unknown]
  - Dermatitis allergic [Unknown]
